FAERS Safety Report 19829717 (Version 1)
Quarter: 2021Q3

REPORT INFORMATION
  Report Type: Spontaneous
  Country: US (occurrence: US)
  Receive Date: 20210915
  Receipt Date: 20210915
  Transmission Date: 20211014
  Serious: Yes (Disabling)
  Sender: FDA-Public Use
  Company Number: US-BIOGEN-2021BI01046411

PATIENT
  Age: 32 Year
  Sex: Male

DRUGS (2)
  1. EVRYSDI [Suspect]
     Active Substance: RISDIPLAM
     Indication: SPINAL MUSCULAR ATROPHY
     Route: 065
     Dates: start: 202103
  2. SPINRAZA [Suspect]
     Active Substance: NUSINERSEN
     Indication: SPINAL MUSCULAR ATROPHY
     Route: 065
     Dates: end: 202011

REACTIONS (1)
  - Spinal muscular atrophy [Unknown]

NARRATIVE: CASE EVENT DATE: 202103
